FAERS Safety Report 6122501-0 (Version None)
Quarter: 2009Q1

REPORT INFORMATION
  Report Type: 
  Country: None (occurrence: None)
  Receive Date: 20090318
  Receipt Date: 20081216
  Transmission Date: 20090719
  Serious: No
  Sender: FDA-Public Use
  Company Number: US-ASTRAZENECA-2008UW23384

PATIENT
  Age: 50 Year
  Sex: Female
  Weight: 57.4 kg

DRUGS (3)
  1. SYMBICORT [Suspect]
     Indication: BRONCHITIS
     Dosage: 160/4.5 UG TWO INHALATIONS TWICE A DAY
     Route: 055
     Dates: start: 20080923, end: 20080926
  2. SYMBICORT [Suspect]
     Indication: ASTHMA
     Dosage: 160/4.5 UG TWO INHALATIONS TWICE A DAY
     Route: 055
     Dates: start: 20080923, end: 20080926
  3. ATROVENT [Concomitant]

REACTIONS (2)
  - OROPHARYNGEAL PAIN [None]
  - THROAT LESION [None]
